FAERS Safety Report 19855559 (Version 1)
Quarter: 2021Q3

REPORT INFORMATION
  Report Type: Spontaneous
  Country: JP (occurrence: JP)
  Receive Date: 20210920
  Receipt Date: 20210920
  Transmission Date: 20211014
  Serious: Yes (Other)
  Sender: FDA-Public Use
  Company Number: JP-ELI_LILLY_AND_COMPANY-JP202109004970

PATIENT
  Sex: Female

DRUGS (3)
  1. NECITUMUMAB [Suspect]
     Active Substance: NECITUMUMAB
     Indication: NON-SMALL CELL LUNG CANCER
     Route: 041
  2. CISPLATIN. [Concomitant]
     Active Substance: CISPLATIN
     Indication: NON-SMALL CELL LUNG CANCER
  3. GEMCITABINE. [Concomitant]
     Active Substance: GEMCITABINE
     Indication: NON-SMALL CELL LUNG CANCER

REACTIONS (3)
  - Organising pneumonia [Unknown]
  - Dermatitis acneiform [Unknown]
  - Deep vein thrombosis [Unknown]
